FAERS Safety Report 19481877 (Version 2)
Quarter: 2021Q3

REPORT INFORMATION
  Report Type: Spontaneous
  Country: JP (occurrence: JP)
  Receive Date: 20210701
  Receipt Date: 20210707
  Transmission Date: 20211014
  Serious: Yes (Life-Threatening, Hospitalization, Other)
  Sender: FDA-Public Use
  Company Number: JP-ACCORD-229739

PATIENT
  Age: 77 Year
  Sex: Female

DRUGS (1)
  1. CISPLATIN. [Suspect]
     Active Substance: CISPLATIN
     Indication: CERVIX CARCINOMA STAGE II

REACTIONS (8)
  - Septic shock [Recovering/Resolving]
  - Paralysis [Recovering/Resolving]
  - Cerebral infarction [Recovering/Resolving]
  - Listeriosis [Recovering/Resolving]
  - Condition aggravated [Recovering/Resolving]
  - Leukopenia [Recovering/Resolving]
  - Meningitis listeria [Recovering/Resolving]
  - Pyometra [Recovering/Resolving]
